FAERS Safety Report 8389720 (Version 5)
Quarter: 2015Q4

REPORT INFORMATION
  Report Type: Spontaneous
  Country: US (occurrence: US)
  Receive Date: 20120203
  Receipt Date: 20151215
  Transmission Date: 20160305
  Serious: Yes (Congenital Anomaly, Other)
  Sender: FDA-Public Use
  Company Number: US-GLAXOSMITHKLINE-A0912527A

PATIENT
  Sex: Male

DRUGS (3)
  1. PAROXETINE [Suspect]
     Active Substance: PAROXETINE\PAROXETINE HYDROCHLORIDE
     Indication: ANXIETY
     Dosage: 20 MG, UNK
     Route: 064
     Dates: start: 200206, end: 200405
  2. PAXIL [Suspect]
     Active Substance: PAROXETINE HYDROCHLORIDE
     Indication: ANXIETY
     Dosage: 20 MG, QD
     Route: 064
     Dates: start: 200107, end: 200602
  3. PAXIL CR [Suspect]
     Active Substance: PAROXETINE HYDROCHLORIDE
     Indication: ANXIETY
     Dosage: 125 MG, UNK
     Route: 064
     Dates: start: 200602

REACTIONS (12)
  - Speech disorder developmental [Unknown]
  - Congenital anomaly [Unknown]
  - Developmental delay [Unknown]
  - Middle ear disorder [Unknown]
  - Respiratory depression [Unknown]
  - Otitis media chronic [Unknown]
  - Respiratory distress [Unknown]
  - Persistent foetal circulation [Unknown]
  - Tympanic membrane perforation [Unknown]
  - Attention deficit/hyperactivity disorder [Unknown]
  - Foetal exposure during pregnancy [Unknown]
  - Autism spectrum disorder [Unknown]

NARRATIVE: CASE EVENT DATE: 200206
